FAERS Safety Report 6569604-4 (Version None)
Quarter: 2010Q1

REPORT INFORMATION
  Report Type: 
  Country: None (occurrence: None)
  Receive Date: 20100203
  Receipt Date: 20100203
  Transmission Date: 20100710
  Serious: No
  Sender: FDA-Public Use
  Company Number: None

PATIENT
  Age: 45 Year
  Sex: Female
  Weight: 73.9363 kg

DRUGS (2)
  1. ZICAM [Suspect]
     Indication: NASOPHARYNGITIS
     Dosage: NASAL SWABS NASAL
     Route: 045
     Dates: start: 20090620, end: 20090625
  2. ZICAM [Suspect]
     Indication: NASOPHARYNGITIS
     Dosage: NASAL SWABS NASAL
     Route: 045
     Dates: start: 20090724, end: 20090729

REACTIONS (3)
  - AGEUSIA [None]
  - ANOSMIA [None]
  - UNEVALUABLE EVENT [None]
